FAERS Safety Report 6331085-3 (Version None)
Quarter: 2009Q3

REPORT INFORMATION
  Report Type: 
  Country: None (occurrence: None)
  Receive Date: 20090827
  Receipt Date: 20090817
  Transmission Date: 20100115
  Serious: Yes (Death)
  Sender: FDA-Public Use
  Company Number: KR-ROCHE-650508

PATIENT
  Age: 56 Year
  Sex: Male

DRUGS (1)
  1. TAMIFLU [Suspect]
     Dosage: DRUG NAME REPORTED AS OSELTAMIVIR PHOSPHATE.
     Route: 048
     Dates: start: 20090812

REACTIONS (2)
  - PNEUMONIA [None]
  - SEPSIS [None]
